FAERS Safety Report 10541228 (Version 1)
Quarter: 2014Q4

REPORT INFORMATION
  Report Type: Spontaneous
  Country: US (occurrence: None)
  Receive Date: 20141010
  Receipt Date: 20141010
  Transmission Date: 20150529
  Serious: No
  Sender: FDA-Public Use
  Company Number: 163-POMAL-14053271

PATIENT
  Age: 66 Year
  Sex: Male
  Weight: 99.79 kg

DRUGS (6)
  1. CARISOPRODOL (CARISOPRODOL) (CAPSULES) [Concomitant]
  2. ACYCLOVIR (ACICLOVIR) (CAPSULES) [Concomitant]
  3. POMALYST [Suspect]
     Active Substance: POMALIDOMIDE
     Indication: PLASMA CELL MYELOMA
     Dosage: 4 MG, 21 IN 21 D, PO?
     Route: 048
     Dates: start: 20140325
  4. NEUPOGEN (FILGRASTIM) (CAPSULES) [Concomitant]
  5. DOC-Q-LACE (DOCUSATE SODIUM) (CAPSULES) [Concomitant]
  6. LYRICA (PREGABALIN) (CAPSULES) [Concomitant]

REACTIONS (1)
  - Dysuria [None]

NARRATIVE: CASE EVENT DATE: 20140515
